FAERS Safety Report 16176662 (Version 3)
Quarter: 2019Q2

REPORT INFORMATION
  Report Type: Spontaneous
  Country: US (occurrence: US)
  Receive Date: 20190409
  Receipt Date: 20190614
  Transmission Date: 20190711
  Serious: Yes (Other)
  Sender: FDA-Public Use
  Company Number: US-SHIRE-US201911473

PATIENT
  Age: 70 Year
  Sex: Female

DRUGS (1)
  1. VPRIV [Suspect]
     Active Substance: VELAGLUCERASE ALFA
     Indication: GAUCHER^S DISEASE
     Dosage: 11 DOSAGE FORM, 2X A WEEK
     Route: 042
     Dates: start: 20170426

REACTIONS (4)
  - Gastroenteritis viral [Unknown]
  - Eye infection [Not Recovered/Not Resolved]
  - Epistaxis [Recovered/Resolved]
  - Inappropriate schedule of product administration [Unknown]

NARRATIVE: CASE EVENT DATE: 20181017
